FAERS Safety Report 7625174-0 (Version None)
Quarter: 2011Q3

REPORT INFORMATION
  Report Type: 
  Country: None (occurrence: None)
  Receive Date: 20110721
  Receipt Date: 20101130
  Transmission Date: 20111222
  Serious: No
  Sender: FDA-Public Use
  Company Number: US-BAYER-2011-001769

PATIENT
  Age: 68 Year
  Sex: Female
  Weight: 57.143 kg

DRUGS (1)
  1. BETASERON [Suspect]
     Indication: PRODUCT USED FOR UNKNOWN INDICATION
     Dosage: 0.187 MG, UNK
     Route: 058
     Dates: start: 20101001

REACTIONS (1)
  - HEADACHE [None]
